FAERS Safety Report 23677111 (Version 1)
Quarter: 2024Q1

REPORT INFORMATION
  Report Type: Spontaneous
  Country: DE (occurrence: DE)
  Receive Date: 20240327
  Receipt Date: 20240327
  Transmission Date: 20240410
  Serious: Yes (Other)
  Sender: FDA-Public Use
  Company Number: DE-GLAXOSMITHKLINE-DE2024EME037154

PATIENT

DRUGS (1)
  1. FLUTICASONE FUROATE\VILANTEROL TRIFENATATE [Suspect]
     Active Substance: FLUTICASONE FUROATE\VILANTEROL TRIFENATATE
     Indication: Asthma
     Dosage: 100 UNK, RELUAR ELLIPTA 184/22
     Route: 055
     Dates: start: 20240102, end: 20240128

REACTIONS (4)
  - Laryngeal oedema [Unknown]
  - Aphonia [Unknown]
  - Dysphonia [Unknown]
  - Aphasia [Unknown]

NARRATIVE: CASE EVENT DATE: 20240118
